FAERS Safety Report 20818208 (Version 3)
Quarter: 2023Q1

REPORT INFORMATION
  Report Type: Spontaneous
  Country: US (occurrence: US)
  Receive Date: 20220512
  Receipt Date: 20230210
  Transmission Date: 20230418
  Serious: No
  Sender: FDA-Public Use
  Company Number: US-PFIZER INC-202200057381

PATIENT
  Age: 55 Year
  Sex: Female

DRUGS (1)
  1. XELJANZ XR [Suspect]
     Active Substance: TOFACITINIB CITRATE
     Indication: Rheumatoid arthritis
     Dosage: 11 MG, 1X/DAY
     Route: 048
     Dates: start: 202111

REACTIONS (8)
  - Influenza [Unknown]
  - Pain [Unknown]
  - Cough [Unknown]
  - Sleep disorder [Unknown]
  - Dysgeusia [Unknown]
  - Contusion [Unknown]
  - Discouragement [Unknown]
  - Depression [Unknown]
